FAERS Safety Report 15323538 (Version 2)
Quarter: 2018Q3

REPORT INFORMATION
  Report Type: Report from Study
  Country: US (occurrence: US)
  Receive Date: 20180827
  Receipt Date: 20180904
  Transmission Date: 20181010
  Serious: Yes (Hospitalization)
  Sender: FDA-Public Use
  Company Number: US-GILEAD-2018-0359180

PATIENT
  Age: 13 Year
  Sex: Male

DRUGS (10)
  1. OMEPRAZOLE. [Suspect]
     Active Substance: OMEPRAZOLE
     Indication: CYSTIC FIBROSIS
     Dosage: TK 1 CAP PO QD
     Route: 048
     Dates: start: 20150403
  2. MEPHYTON [Suspect]
     Active Substance: PHYTONADIONE
     Indication: CYSTIC FIBROSIS
     Dosage: TK 1 TAB PO QD
     Route: 048
     Dates: start: 20171026
  3. VITAMIN D3 [Suspect]
     Active Substance: CHOLECALCIFEROL
     Indication: CYSTIC FIBROSIS
     Dosage: TK 1 CAP EVERY WEEK
     Route: 048
     Dates: start: 20171026
  4. CREON [Concomitant]
     Active Substance: PANCRELIPASE AMYLASE\PANCRELIPASE LIPASE\PANCRELIPASE PROTEASE
     Dates: start: 20150403
  5. AZTREONAM LYSINE [Suspect]
     Active Substance: AZTREONAM LYSINE
     Indication: CYSTIC FIBROSIS
     Dosage: 75 MG, TID FOR 28 DAYS ON AND 28 DAYS OFF
     Route: 055
     Dates: start: 20150408
  6. PERTZYE [Suspect]
     Active Substance: PANCRELIPASE AMYLASE\PANCRELIPASE LIPASE\PANCRELIPASE PROTEASE
     Indication: CYSTIC FIBROSIS
     Dosage: TK 3 CAPS PO WITH MEALS AND TK 2 CAPS PO WITH SNACKS
     Route: 048
     Dates: start: 20171018
  7. POLYETHYLENE GLYCOL 3350. [Suspect]
     Active Substance: POLYETHYLENE GLYCOL 3350
     Indication: CYSTIC FIBROSIS
     Dosage: 17 G, TID
     Route: 048
     Dates: start: 20171128
  8. URSODIOL. [Suspect]
     Active Substance: URSODIOL
     Indication: CYSTIC FIBROSIS
     Dosage: TK 1 CAP PO BID
     Route: 048
     Dates: start: 20171026
  9. FLUTICASONE. [Suspect]
     Active Substance: FLUTICASONE
     Indication: CYSTIC FIBROSIS
     Dosage: USE 1 SPRAY IN EACH NOSTRIL BID
     Route: 045
     Dates: start: 20160308
  10. PULMOZYME [Suspect]
     Active Substance: DORNASE ALFA
     Indication: CYSTIC FIBROSIS
     Dosage: INHALE 2.5 ML DAILY
     Route: 055
     Dates: start: 20150630

REACTIONS (1)
  - Constipation [Unknown]

NARRATIVE: CASE EVENT DATE: 20180808
